FAERS Safety Report 9880341 (Version 1)
Quarter: 2014Q1

REPORT INFORMATION
  Report Type: Spontaneous
  Country: US (occurrence: US)
  Receive Date: 20140207
  Receipt Date: 20140207
  Transmission Date: 20141002
  Serious: Yes (Death)
  Sender: FDA-Public Use
  Company Number: US-AMGEN-USASP2014008292

PATIENT
  Sex: 0

DRUGS (34)
  1. FILGRASTIM [Suspect]
     Indication: ACUTE LYMPHOCYTIC LEUKAEMIA
     Dosage: STARTED 24 H AFTER THE END OF CYTOSINE ARABINOSIDE, INDUCTION PHASE I (5MG/KG)
     Route: 058
  2. FILGRASTIM [Suspect]
     Dosage: STARTED ON DAY 5, INDUCTION PHASE 2 (5 MG/KG)
     Route: 058
  3. FILGRASTIM [Suspect]
     Dosage: CONSOLIDATION BLOCK I AND II (5MG/KG)
     Route: 058
  4. ALLOPURINOL [Suspect]
     Indication: ACUTE LYMPHOCYTIC LEUKAEMIA
     Dosage: 300 MG, 1-15 DAYS
     Route: 048
  5. PREDNISONE [Suspect]
     Indication: ACUTE LYMPHOCYTIC LEUKAEMIA
     Dosage: INDUCTION PHASE I 100 MG/M2, DAY 1-8 AND 15-21
     Route: 048
  6. PREDNISONE [Suspect]
     Dosage: CONSOLIDATION BLOCK I (100 MG/M2, DAYS 1-5)
     Route: 048
  7. VINCRISTINE [Suspect]
     Indication: ACUTE LYMPHOCYTIC LEUKAEMIA
     Dosage: 1.5 MG/M2 (MAX 2 MG), INDUCTION PHASE I (DAY 1, 8,15, AND 22)
     Route: 042
  8. VINCRISTINE [Suspect]
     Dosage: 0.4 MG/M2 (MAX 2 MG) CONTINOUS IV INFUSION (CIV) ON DAY 1-4, INDUCTION PHASE 2
     Route: 042
  9. VINCRISTINE [Suspect]
     Dosage: 1.5 MG/M2 (MAX 2 MG), CONSOLIDATED BLOCK I (ON DAY 1)
     Route: 042
  10. VINCRISTINE [Suspect]
     Dosage: 1.5 MG/M2 (MAX 2 MG), CIV ON DAY 1, CONSOLIDATION BLOCK II
     Route: 042
  11. CYTARABINE [Suspect]
     Indication: ACUTE LYMPHOCYTIC LEUKAEMIA
     Dosage: 3 G/M2, OVER 3H FOR 4 DOSES ON DAY 1 AND 2 (2 IN 1D)
     Route: 042
  12. METHOTREXATE [Suspect]
     Indication: ACUTE LYMPHOCYTIC LEUKAEMIA
     Dosage: 1 G/M2 CONTINOUS INTRAVENOUS INFUSION (CIV) OVER 36 H ON DAY 15, INDUCTION PHASE I
     Route: 042
  13. METHOTREXATE [Suspect]
     Dosage: 12 MG, ON DAY 1 OR 2 INTRATHECAL THERAPY
     Route: 037
  14. METHOTREXATE [Suspect]
     Dosage: CONSOLIDATION BLOCK I (500 MG/M2, OVER 4H ON DAY 8)
     Route: 042
  15. METHOTREXATE [Suspect]
     Dosage: OVER 4 H ON DAY 8, CONSOLIDATION BLOCK II (500 MG/M2)
     Route: 042
  16. METHOTREXATE [Suspect]
     Dosage: MAINTENANCE THERAPY (50 MG/M2, FOR 2 YEARS)
     Route: 048
  17. LEUCOVORIN /00566702/ [Suspect]
     Indication: ACUTE LYMPHOCYTIC LEUKAEMIA
     Dosage: ORAL OR INTRAVENOUS STARTING 42 HOURS AFTER STARTING METHOTREXATE EVERY 6 HOURS FOR 6 DOSES
     Route: 065
  18. LEUCOVORIN /00566702/ [Suspect]
     Dosage: PO OR IV STARTING 42 H AFTER STARTING METHOTREXATE EVERY 6 H FOR 6 DOSES,
     Route: 065
  19. LEUCOVORIN /00566702/ [Suspect]
     Dosage: PO OR IV STARTING 42 H AFTER STARTING METHOTREXATE EVERY 6 H FOR 6 DOSES,
     Route: 065
  20. L-ASPARAGINASE [Suspect]
     Indication: ACUTE LYMPHOCYTIC LEUKAEMIA
     Dosage: 10000 UNITS/M2/DOSE ON DAYS 3, 4, 16, AND 17
     Route: 042
  21. DEXAMETHASONE [Suspect]
     Indication: ACUTE LYMPHOCYTIC LEUKAEMIA
     Dosage: ON DAY 1-4, 9 TO 12, INDUCTION PHASE II (40 MG, DAILY)
     Route: 048
  22. DEXAMETHASONE [Suspect]
     Dosage: CONSOLIDATION BLOCK II (20 MG/M2, ON DAY 1-5)
     Route: 048
  23. IFOSFAMIDE [Suspect]
     Indication: ACUTE LYMPHOCYTIC LEUKAEMIA
     Dosage: ON DAY 1-4, INDUCTION PHASE II (500 MG, DAILY)
     Route: 042
  24. IFOSFAMIDE [Suspect]
     Dosage: 1.33 G/M2, ON DAY 1
     Route: 042
  25. MESNA [Suspect]
     Indication: ACUTE LYMPHOCYTIC LEUKAEMIA
     Dosage: IMMEDIATELY BEFORE IFOSFAMIDE ON DAYS 1-4, INDUCTION PHASE II (500 MG/M2, DAILY)
     Route: 042
  26. MESNA [Suspect]
     Dosage: IMMEDIATELY BEFORE IFOSFAMIDE, CONSOLIDATION BLOCK II (500 MG/M2)
     Route: 042
  27. ADRIAMYCIN /00330901/ [Suspect]
     Indication: ACUTE LYMPHOCYTIC LEUKAEMIA
     Dosage: CONTINOUS IV INFUSION (CIV) ON DAY 1-4 (12 MG/M2)
     Route: 042
  28. CYTOSINE ARABINOSIDE [Suspect]
     Indication: ACUTE LYMPHOCYTIC LEUKAEMIA
     Dosage: INTRATHECAL THERAPY (30 MG ON DAY 1 OR 2)
     Route: 037
  29. CYTOSINE ARABINOSIDE [Suspect]
     Dosage: CONSOLIDATION BLOCK I (300 MG/M2, ON DAY 1)
     Route: 042
  30. HYDROCORTISONE [Suspect]
     Indication: ACUTE LYMPHOCYTIC LEUKAEMIA
     Dosage: 15 MG, ON DAY 1 OR 2
     Route: 065
  31. MERCAPTOPURINE [Suspect]
     Indication: ACUTE LYMPHOCYTIC LEUKAEMIA
     Dosage: 100 MG/M2, DAILY ON DAY 1-5
     Route: 048
  32. VP-16 [Suspect]
     Indication: ACUTE LYMPHOCYTIC LEUKAEMIA
     Dosage: CONSOLIDATION BLOCK I (100 MG/M2, ON DAYS 1 TO 5)
     Route: 048
  33. THIOGUANINE [Suspect]
     Indication: ACUTE LYMPHOCYTIC LEUKAEMIA
     Dosage: CONSOLIDATION BLOCK II (100 MG/M2, ON DAY 1-5)
     Route: 048
  34. THIOGUANINE [Suspect]
     Dosage: MAINTENANCE THERAPY (50 MG/M2, DAILY FOR 2 YEARS)
     Route: 048

REACTIONS (1)
  - Bone marrow failure [Fatal]
